FAERS Safety Report 7269186-8 (Version None)
Quarter: 2011Q1

REPORT INFORMATION
  Report Type: 
  Country: None (occurrence: None)
  Receive Date: 20110202
  Receipt Date: 20110131
  Transmission Date: 20110831
  Serious: No
  Sender: FDA-Public Use
  Company Number: US-PFIZER INC-2010174874

PATIENT
  Sex: Female
  Weight: 99 kg

DRUGS (8)
  1. CHANTIX [Suspect]
     Indication: SMOKING CESSATION THERAPY
     Dosage: 0.5 MG, 1X/DAY
     Route: 048
     Dates: start: 20101205
  2. LIPITOR [Concomitant]
     Dosage: UNK
  3. ADVAIR [Concomitant]
     Dosage: UNK
  4. NEXIUM [Concomitant]
     Dosage: UNK
  5. MONTELUKAST [Concomitant]
     Dosage: UNK
  6. DETROL LA [Concomitant]
     Dosage: UNK
  7. VALSARTAN [Concomitant]
     Indication: HYPERTENSION
     Dosage: UNK
  8. CHANTIX [Suspect]
     Dosage: 1 MG, 2X/DAY
     Route: 048

REACTIONS (1)
  - INSOMNIA [None]
